FAERS Safety Report 21997089 (Version 1)
Quarter: 2023Q1

REPORT INFORMATION
  Report Type: Spontaneous
  Country: NL (occurrence: NL)
  Receive Date: 20230215
  Receipt Date: 20230215
  Transmission Date: 20230418
  Serious: Yes (Disabling)
  Sender: FDA-Public Use
  Company Number: NL-LRB-00864041

PATIENT
  Sex: Male
  Weight: 80 kg

DRUGS (1)
  1. ISOTRETINOIN [Suspect]
     Active Substance: ISOTRETINOIN
     Indication: Acne
     Dosage: 30 MILLIGRAM, DAILY, 1X10% PER DAY AND 1X20% PER DAY
     Route: 065
     Dates: start: 20210127

REACTIONS (1)
  - Salivary gland cancer [Unknown]
